FAERS Safety Report 4281518-1 (Version None)
Quarter: 2004Q1

REPORT INFORMATION
  Report Type: 
  Country: None (occurrence: None)
  Receive Date: 20040108
  Receipt Date: 20040120
  Transmission Date: 20041129
  Serious: Yes (Hospitalization)
  Sender: FDA-Public Use
  Company Number: 2004195760JP

PATIENT

DRUGS (2)
  1. ALPRAZOLAM [Suspect]
     Dosage: ORAL
     Route: 048
  2. DESYREL [Suspect]
     Dosage: ORAL
     Route: 048

REACTIONS (1)
  - ENTEROCOLITIS [None]
